FAERS Safety Report 9128397 (Version 1)
Quarter: 2013Q1

REPORT INFORMATION
  Report Type: Spontaneous
  Country: US (occurrence: US)
  Receive Date: 20130228
  Receipt Date: 20130228
  Transmission Date: 20140127
  Serious: No
  Sender: FDA-Public Use
  Company Number: US-GLAXOSMITHKLINE-A0977773A

PATIENT
  Age: 29 Year
  Sex: Female

DRUGS (2)
  1. SUMATRIPTAN [Suspect]
     Indication: MIGRAINE
     Dosage: 6MG AS REQUIRED
     Dates: start: 201111
  2. SUMATRIPTAN [Suspect]
     Dates: start: 201111

REACTIONS (4)
  - Pain [Unknown]
  - Needle issue [Unknown]
  - Product quality issue [Unknown]
  - Injection site pain [Unknown]
